FAERS Safety Report 17915493 (Version 2)
Quarter: 2020Q4

REPORT INFORMATION
  Report Type: Spontaneous
  Country: DE (occurrence: DE)
  Receive Date: 20200619
  Receipt Date: 20201015
  Transmission Date: 20210113
  Serious: Yes (Life-Threatening)
  Sender: FDA-Public Use
  Company Number: DE-BAXTER-2020BAX011965

PATIENT
  Age: 65 Year
  Sex: Female
  Weight: 70 kg

DRUGS (18)
  1. PROPOFOL. [Concomitant]
     Active Substance: PROPOFOL
     Indication: PRODUCT USED FOR UNKNOWN INDICATION
     Route: 042
  2. SUFENTANIL [Concomitant]
     Active Substance: SUFENTANIL
     Indication: PRODUCT USED FOR UNKNOWN INDICATION
     Dosage: 0.05 MG/ML AMP, CONTINUOUS ADMINISTRATION
     Route: 041
  3. ERYTHROMYCIN. [Concomitant]
     Active Substance: ERYTHROMYCIN
     Indication: PRODUCT USED FOR UNKNOWN INDICATION
     Route: 042
  4. INSUMAN RAPID [Concomitant]
     Active Substance: INSULIN HUMAN
     Indication: PRODUCT USED FOR UNKNOWN INDICATION
     Dosage: 1000 IE, 100 IE/ML 10 ML
     Route: 065
  5. ARIXTRA [Concomitant]
     Active Substance: FONDAPARINUX SODIUM
     Indication: PRODUCT USED FOR UNKNOWN INDICATION
     Dosage: 1.5 MG/0,3 ML
     Route: 058
  6. JONOSTERIL [Concomitant]
     Indication: PRODUCT USED FOR UNKNOWN INDICATION
     Dosage: ZUR INFUSION
     Route: 042
  7. MEROPENEM. [Concomitant]
     Active Substance: MEROPENEM
     Route: 042
     Dates: start: 20200312, end: 20200320
  8. PANTOPRAZOLE SODIUM. [Concomitant]
     Active Substance: PANTOPRAZOLE SODIUM
     Indication: PRODUCT USED FOR UNKNOWN INDICATION
     Dosage: PANTOPRAZOL 40 MG, I.V. 40 MG
     Route: 042
  9. SEVOFLURAN BAXTER 100 % FLUSSIGKEIT ZUR HERSTELLUNG EINES DAMPFS ZUR I [Suspect]
     Active Substance: SEVOFLURANE
     Indication: SEDATION
     Dosage: 0.8 - 1 VOL%, FURTHER ADMINISTRATION 12MAR-20MAR2020 0.8-1.3 VOL%
     Route: 055
     Dates: start: 20200218, end: 20200225
  10. POTASSIUM CHLORIDE. [Concomitant]
     Active Substance: POTASSIUM CHLORIDE
     Indication: PRODUCT USED FOR UNKNOWN INDICATION
     Route: 065
  11. METOCLOPRAMIDE. [Concomitant]
     Active Substance: METOCLOPRAMIDE
     Indication: PRODUCT USED FOR UNKNOWN INDICATION
     Route: 042
  12. VANCOMYCIN [Concomitant]
     Active Substance: VANCOMYCIN
     Indication: ANTIBIOTIC THERAPY
     Route: 042
     Dates: start: 20200211, end: 20200224
  13. VANCOMYCIN [Concomitant]
     Active Substance: VANCOMYCIN
     Route: 042
     Dates: start: 20200316, end: 20200320
  14. MIDAZOLAM. [Concomitant]
     Active Substance: MIDAZOLAM
     Indication: PRODUCT USED FOR UNKNOWN INDICATION
     Route: 042
  15. ARTERENOL [Concomitant]
     Active Substance: NOREPINEPHRINE HYDROCHLORIDE, (+/-)-
     Indication: PRODUCT USED FOR UNKNOWN INDICATION
     Dosage: 25 MG NORADRENALIN, 1:1000
     Route: 042
  16. FUROSEMIDE. [Concomitant]
     Active Substance: FUROSEMIDE
     Indication: PRODUCT USED FOR UNKNOWN INDICATION
     Dosage: UP TO 80 MG, INDICATION: DESIRES NEGATIVE BALANCING
     Route: 042
  17. MEROPENEM. [Concomitant]
     Active Substance: MEROPENEM
     Indication: ANTIBIOTIC THERAPY
     Route: 042
     Dates: start: 20200211, end: 20200224
  18. PARACEFAN [Concomitant]
     Active Substance: CLONIDINE
     Indication: PRODUCT USED FOR UNKNOWN INDICATION
     Dosage: I.V. 0.15 MG
     Route: 042

REACTIONS (2)
  - Hypernatraemia [Recovering/Resolving]
  - Polyuria [Recovering/Resolving]

NARRATIVE: CASE EVENT DATE: 20200218
